FAERS Safety Report 5049664-2 (Version None)
Quarter: 2006Q3

REPORT INFORMATION
  Report Type: 
  Country: None (occurrence: None)
  Receive Date: 20060712
  Receipt Date: 20060705
  Transmission Date: 20061208
  Serious: Yes (Hospitalization)
  Sender: FDA-Public Use
  Company Number: US-ABBOTT-06P-163-0337336-00

PATIENT
  Sex: Female
  Weight: 99 kg

DRUGS (5)
  1. SYNTHROID [Suspect]
     Indication: THYROIDECTOMY
     Route: 048
     Dates: start: 20060504
  2. PHENYTOIN SODIUM [Concomitant]
     Indication: CONVULSION
     Route: 048
     Dates: start: 19860101
  3. PHENOBARBITAL [Concomitant]
     Indication: CONVULSION
     Route: 048
     Dates: start: 19860101
  4. HYDROCHLOROTHIAZIDE [Concomitant]
     Indication: FLUID RETENTION
     Route: 048
     Dates: start: 20020101
  5. AMLODIPINE BESYLATE [Concomitant]
     Indication: HYPERTENSION
     Route: 048
     Dates: start: 20050101

REACTIONS (2)
  - CHEST PAIN [None]
  - MUSCULOSKELETAL PAIN [None]
